FAERS Safety Report 9061448 (Version 2)
Quarter: 2013Q1

REPORT INFORMATION
  Report Type: Spontaneous
  Country: JP (occurrence: JP)
  Receive Date: 20130204
  Receipt Date: 20130225
  Transmission Date: 20140127
  Serious: Yes (Hospitalization)
  Sender: FDA-Public Use
  Company Number: JP-SANOFI-AVENTIS-2013SA008057

PATIENT
  Age: 56 Year
  Sex: Female
  Weight: 39 kg

DRUGS (5)
  1. FLUOROURACIL [Suspect]
     Indication: OESOPHAGEAL CARCINOMA
     Route: 065
     Dates: start: 2011, end: 2011
  2. CISPLATIN [Suspect]
     Indication: OESOPHAGEAL CARCINOMA
     Route: 065
     Dates: start: 2011, end: 2011
  3. TAXOTERE [Suspect]
     Indication: OESOPHAGEAL CARCINOMA
     Route: 042
     Dates: start: 2011
  4. NEDAPLATIN [Suspect]
     Indication: OESOPHAGEAL CARCINOMA
     Route: 065
     Dates: start: 2011
  5. THERAPEUTIC RADIOPHARMACEUTICALS [Suspect]
     Indication: OESOPHAGEAL CARCINOMA
     Dosage: TOTAL IRRADIATION: 60 GY
     Route: 065
     Dates: start: 2011, end: 2011

REACTIONS (13)
  - Oesophageal fistula [Recovered/Resolved]
  - Pyrexia [Recovered/Resolved]
  - Abdominal pain upper [Recovered/Resolved]
  - Purulent pericarditis [Recovered/Resolved]
  - C-reactive protein increased [Recovered/Resolved]
  - White blood cell count increased [Recovered/Resolved]
  - Cardiac tamponade [Recovering/Resolving]
  - Hypotension [Recovering/Resolving]
  - Sinus tachycardia [Recovering/Resolving]
  - Pericardial rub [Recovering/Resolving]
  - Electrocardiogram ST segment elevation [Recovering/Resolving]
  - Pericardial effusion [Recovering/Resolving]
  - Electrocardiogram QRS complex abnormal [Recovering/Resolving]
